FAERS Safety Report 22123064 (Version 4)
Quarter: 2024Q3

REPORT INFORMATION
  Report Type: Spontaneous
  Country: BR (occurrence: BR)
  Receive Date: 20230322
  Receipt Date: 20240924
  Transmission Date: 20241017
  Serious: Yes (Other)
  Sender: CELLTRION
  Company Number: BR-CELLTRION INC.-2023BR005891

PATIENT

DRUGS (13)
  1. INFLIXIMAB [Suspect]
     Active Substance: INFLIXIMAB
     Indication: Crohn^s disease
     Dosage: 3 AMPOULES EVERY 2 MONTHS
     Route: 042
     Dates: start: 20230303
  2. INFLIXIMAB [Suspect]
     Active Substance: INFLIXIMAB
     Dosage: 2 AMPOULES EVERY MONTH
     Route: 042
  3. INFLIXIMAB [Suspect]
     Active Substance: INFLIXIMAB
     Dosage: 3 AMPOULES EVERY 2 MONTHS
     Route: 042
     Dates: start: 20231108
  4. AZATHIOPRINE [Concomitant]
     Active Substance: AZATHIOPRINE
     Indication: Crohn^s disease
     Dosage: 3 PILLS A DAY (START: 30 YEARS AGO)
     Route: 048
  5. COLLAGEN [Concomitant]
     Active Substance: COLLAGEN
     Indication: Supplementation therapy
     Dosage: 1 PILL A DAY (START: 4 YEARS AGO)
     Route: 048
  6. COLLAGEN [Concomitant]
     Active Substance: COLLAGEN
     Indication: Arthralgia
  7. RALOXIFENE [Concomitant]
     Active Substance: RALOXIFENE
     Indication: Osteoporosis
     Dosage: 1 PILL A DAY (START: 30 YEARS AGO) / START: 20 YEARS
     Route: 048
  8. RALOXIFENE [Concomitant]
     Active Substance: RALOXIFENE
     Dosage: 1 PILL A DAY (START: 20 YEARS)
     Route: 048
  9. DULOXETINE [Concomitant]
     Active Substance: DULOXETINE
     Indication: Crohn^s disease
     Dosage: 2 PILLS A DAY (START: 4 YEARS AGO)
     Route: 048
  10. FISH OIL [Concomitant]
     Active Substance: FISH OIL
     Indication: Supplementation therapy
     Dosage: 1 DRAGE A DAY (START: 4 YEARS AGO)
     Route: 048
  11. FLUOXETINE [Concomitant]
     Active Substance: FLUOXETINE HYDROCHLORIDE
     Indication: Depression
     Dosage: 2 PILLS A DAY
     Route: 048
  12. COVID-19 VACCINE [Concomitant]
     Dosage: COVID VACCINE BOOSTER
     Dates: start: 20231218
  13. ALPRAZOLAM [Concomitant]
     Active Substance: ALPRAZOLAM
     Indication: Pain
     Dosage: 0.25 MG

REACTIONS (7)
  - Rotator cuff syndrome [Unknown]
  - Neck pain [Unknown]
  - Arthralgia [Unknown]
  - Influenza [Recovered/Resolved]
  - Memory impairment [Not Recovered/Not Resolved]
  - Intentional dose omission [Unknown]
  - Intentional product use issue [Unknown]
